FAERS Safety Report 5601173-5 (Version None)
Quarter: 2008Q1

REPORT INFORMATION
  Report Type: 
  Country: None (occurrence: None)
  Receive Date: 20080124
  Receipt Date: 20080118
  Transmission Date: 20080703
  Serious: Yes (Life-Threatening)
  Sender: FDA-Public Use
  Company Number: JP-ASTRAZENECA-2008AP00120

PATIENT
  Age: 74 Year
  Sex: Male
  Weight: 63.8 kg

DRUGS (17)
  1. MEROPENEM [Suspect]
     Indication: BACTERAEMIA
     Route: 042
     Dates: start: 20071026, end: 20071028
  2. GLYSENNID [Concomitant]
     Indication: CONSTIPATION
     Route: 048
     Dates: end: 20071028
  3. EPOGIN [Concomitant]
     Indication: RENAL FAILURE CHRONIC
     Dosage: 3 KIU QD
     Route: 041
  4. LIPITOR [Concomitant]
     Indication: ANGINA PECTORIS
     Route: 048
     Dates: start: 20070405, end: 20071028
  5. XYLORIC [Concomitant]
     Indication: HYPERURICAEMIA
     Route: 048
     Dates: start: 20070405, end: 20071028
  6. KINEDAK [Concomitant]
     Indication: DIABETIC NEUROPATHY
     Route: 048
     Dates: start: 20070405, end: 20071028
  7. LASIX [Concomitant]
     Indication: RENAL FAILURE CHRONIC
     Route: 048
     Dates: start: 20070405, end: 20071028
  8. CALTAN [Concomitant]
     Indication: RENAL FAILURE CHRONIC
     Route: 048
     Dates: start: 20070105, end: 20071028
  9. NOVORAPID [Concomitant]
     Indication: DIABETES MELLITUS
     Route: 058
     Dates: start: 20070405, end: 20071028
  10. NOVORAPID [Concomitant]
     Route: 058
     Dates: start: 20070405, end: 20071028
  11. ASPIRIN [Concomitant]
     Indication: ANGINA PECTORIS
     Route: 048
     Dates: start: 20070419, end: 20071028
  12. TICLOPIDINE HCL [Concomitant]
     Indication: ANGINA PECTORIS
     Route: 048
     Dates: start: 20070419, end: 20071029
  13. OMEPRAL [Concomitant]
     Indication: GASTRITIS
     Route: 048
     Dates: start: 20070802, end: 20071008
  14. UNKNOWN [Concomitant]
     Indication: NEUROPATHY PERIPHERAL
     Route: 048
     Dates: start: 20070802, end: 20071028
  15. ROCALTROL [Concomitant]
     Indication: RENAL FAILURE CHRONIC
     Route: 048
     Dates: start: 20070802, end: 20071028
  16. RENAGEL [Concomitant]
     Indication: RENAL FAILURE CHRONIC
     Route: 048
     Dates: start: 20070802, end: 20071028
  17. CALONAL [Concomitant]
     Indication: BACTERAEMIA
     Route: 048

REACTIONS (2)
  - HEPATITIS FULMINANT [None]
  - PLATELET COUNT DECREASED [None]
